FAERS Safety Report 5777782-X (Version None)
Quarter: 2008Q2

REPORT INFORMATION
  Report Type: 
  Country: None (occurrence: None)
  Receive Date: 20080618
  Receipt Date: 20080611
  Transmission Date: 20081010
  Serious: Yes (Death)
  Sender: FDA-Public Use
  Company Number: US-PFIZER INC-2008049336

PATIENT
  Sex: Female
  Weight: 86.363 kg

DRUGS (2)
  1. LIPITOR [Suspect]
     Indication: BLOOD CHOLESTEROL INCREASED
  2. DRUG, UNSPECIFIED [Concomitant]

REACTIONS (1)
  - LIVER DISORDER [None]
